FAERS Safety Report 12928114 (Version 2)
Quarter: 2016Q4

REPORT INFORMATION
  Report Type: Spontaneous
  Country: FR (occurrence: FR)
  Receive Date: 20161110
  Receipt Date: 20161122
  Transmission Date: 20170207
  Serious: Yes (Hospitalization)
  Sender: FDA-Public Use
  Company Number: FR-OCTA-GAM38916FR

PATIENT
  Age: 44 Year
  Sex: Male

DRUGS (2)
  1. LEXOMIL [Concomitant]
     Active Substance: BROMAZEPAM
     Indication: ANXIETY
     Route: 048
  2. OCTAGAM IMMUNE GLOBULIN (HUMAN) [Suspect]
     Active Substance: HUMAN IMMUNOGLOBULIN G
     Indication: POLYNEUROPATHY
     Route: 042
     Dates: start: 20160915, end: 20160919

REACTIONS (1)
  - Toxic skin eruption [Unknown]

NARRATIVE: CASE EVENT DATE: 20161004
